FAERS Safety Report 13990097 (Version 2)
Quarter: 2017Q3

REPORT INFORMATION
  Report Type: Spontaneous
  Country: JP (occurrence: JP)
  Receive Date: 20170920
  Receipt Date: 20170927
  Transmission Date: 20171128
  Serious: Yes (Other)
  Sender: FDA-Public Use
  Company Number: JP-UCBSA-2017034602

PATIENT
  Age: 67 Year
  Sex: Male

DRUGS (5)
  1. PROSTAGLANDIN F2 ALPHA [Suspect]
     Active Substance: DINOPROST
     Indication: ILEUS
     Dosage: UNK
     Route: 042
     Dates: start: 2017
  2. RISPERDAL [Suspect]
     Active Substance: RISPERIDONE
     Indication: IRRITABILITY
     Dosage: UNK
     Route: 048
     Dates: start: 201706
  3. E KEPPRA [Suspect]
     Active Substance: LEVETIRACETAM
     Dosage: 500 MG DAILY
     Route: 048
     Dates: start: 20170817
  4. E KEPPRA [Suspect]
     Active Substance: LEVETIRACETAM
     Indication: EPILEPSY
     Dosage: 1000 MG DAILY
     Route: 048
     Dates: start: 20170208, end: 20170627
  5. E KEPPRA [Suspect]
     Active Substance: LEVETIRACETAM
     Dosage: 750 MG DAILY
     Route: 048
     Dates: start: 20170628, end: 20170816

REACTIONS (4)
  - Pneumonia [Unknown]
  - Ileus [Unknown]
  - Eosinophil count increased [Unknown]
  - Irritability [Unknown]

NARRATIVE: CASE EVENT DATE: 2017
